FAERS Safety Report 16740820 (Version 1)
Quarter: 2019Q3

REPORT INFORMATION
  Report Type: Spontaneous
  Country: US (occurrence: US)
  Receive Date: 20190826
  Receipt Date: 20190826
  Transmission Date: 20191005
  Serious: Yes (Death, Other)
  Sender: FDA-Public Use
  Company Number: US-AMGEN-USASP2019135044

PATIENT

DRUGS (3)
  1. CYCLOPHOSPHAMIDE. [Concomitant]
     Active Substance: CYCLOPHOSPHAMIDE
     Indication: LYMPHOCYTE COUNT INCREASED
     Dosage: 900 MG/M SQ X 1 DAY
  2. BLINATUMOMAB [Suspect]
     Active Substance: BLINATUMOMAB
     Indication: ACUTE LYMPHOCYTIC LEUKAEMIA
     Dosage: UNK
     Route: 065
  3. FLUDARABINE [Concomitant]
     Active Substance: FLUDARABINE PHOSPHATE
     Indication: LYMPHOCYTE COUNT INCREASED
     Dosage: 25 MG/SQ M X 3 DAYS

REACTIONS (7)
  - Haemophagocytic lymphohistiocytosis [Unknown]
  - Acute respiratory distress syndrome [Fatal]
  - Capillary leak syndrome [Unknown]
  - Coagulopathy [Unknown]
  - Therapy non-responder [Unknown]
  - Atypical haemolytic uraemic syndrome [Fatal]
  - Cytokine release syndrome [Unknown]
